FAERS Safety Report 7540627-1 (Version None)
Quarter: 2011Q2

REPORT INFORMATION
  Report Type: 
  Country: None (occurrence: None)
  Receive Date: 20110610
  Receipt Date: 20110607
  Transmission Date: 20111010
  Serious: Yes (Hospitalization, Other)
  Sender: FDA-Public Use
  Company Number: US-PFIZER INC-2010115852

PATIENT
  Sex: Female

DRUGS (4)
  1. INTERFERON BETA-1B [Suspect]
     Dosage: 8 MIU, DAILY DOSE
     Route: 058
     Dates: start: 20040709, end: 20040819
  2. INTERFERON BETA-1B [Suspect]
     Dosage: UNK
     Dates: start: 20050901
  3. INTERFERON BETA-1B [Suspect]
     Indication: MULTIPLE SCLEROSIS
     Dosage: 8 MIU, QOD (EVERY OTHER DAY)
     Route: 058
     Dates: start: 20030701
  4. SOLU-MEDROL [Suspect]
     Indication: MULTIPLE SCLEROSIS
     Dosage: UNK
     Route: 042

REACTIONS (3)
  - MENSTRUAL DISORDER [None]
  - VOMITING [None]
  - DEHYDRATION [None]
